FAERS Safety Report 4892869-1 (Version None)
Quarter: 2006Q1

REPORT INFORMATION
  Report Type: 
  Country: None (occurrence: None)
  Receive Date: 20060126
  Receipt Date: 20041105
  Transmission Date: 20060701
  Serious: Yes (Other)
  Sender: FDA-Public Use
  Company Number: US-MERCK-0411USA01396

PATIENT
  Age: 58 Year
  Sex: Male
  Weight: 114 kg

DRUGS (1)
  1. VIOXX [Suspect]
     Indication: ARTHRALGIA
     Route: 048
     Dates: start: 20010103, end: 20040802

REACTIONS (6)
  - ASTHENIA [None]
  - BACK PAIN [None]
  - CHEST PAIN [None]
  - HEART RATE IRREGULAR [None]
  - HYPOAESTHESIA [None]
  - MYOCARDIAL INFARCTION [None]
